FAERS Safety Report 23363228 (Version 2)
Quarter: 2024Q2

REPORT INFORMATION
  Report Type: Spontaneous
  Country: US (occurrence: US)
  Receive Date: 20240103
  Receipt Date: 20240515
  Transmission Date: 20240716
  Serious: No
  Sender: FDA-Public Use
  Company Number: US-Eisai-EC-2023-155359

PATIENT
  Age: 79 Year
  Sex: Female

DRUGS (1)
  1. LEQEMBI [Suspect]
     Active Substance: LECANEMAB-IRMB
     Indication: Dementia Alzheimer^s type
     Dosage: DOSE UNKNOWN
     Route: 048
     Dates: start: 20231122

REACTIONS (2)
  - Feeling cold [Recovered/Resolved]
  - Amyloid related imaging abnormalities [Unknown]

NARRATIVE: CASE EVENT DATE: 20231122
